FAERS Safety Report 13192630 (Version 1)
Quarter: 2017Q1

REPORT INFORMATION
  Report Type: Spontaneous
  Country: CN (occurrence: CN)
  Receive Date: 20170207
  Receipt Date: 20170207
  Transmission Date: 20170428
  Serious: Yes (Hospitalization)
  Sender: FDA-Public Use
  Company Number: CN-PFIZER INC-2017051881

PATIENT
  Sex: Male

DRUGS (1)
  1. MEDROL [Suspect]
     Active Substance: METHYLPREDNISOLONE
     Indication: NEPHROTIC SYNDROME
     Dosage: 48 MG, 1X/DAY
     Route: 048
     Dates: start: 20081203, end: 20161003

REACTIONS (2)
  - Disease recurrence [Recovering/Resolving]
  - Diabetes mellitus [Recovering/Resolving]
